FAERS Safety Report 17280774 (Version 1)
Quarter: 2020Q1

REPORT INFORMATION
  Report Type: Spontaneous
  Country: US (occurrence: US)
  Receive Date: 20200117
  Receipt Date: 20200117
  Transmission Date: 20200409
  Serious: No
  Sender: FDA-Public Use
  Company Number: US-TEVA-2020-US-1167849

PATIENT
  Age: 62 Year
  Sex: Female

DRUGS (2)
  1. ASACOL HD [Suspect]
     Active Substance: MESALAMINE
     Indication: COLITIS ULCERATIVE
     Dosage: 2 TABLETS THREE TIMES PER DAY
     Route: 048
     Dates: start: 20191121, end: 20191206
  2. MESALAMINE. [Concomitant]
     Active Substance: MESALAMINE
     Route: 065

REACTIONS (5)
  - Fatigue [Recovered/Resolved]
  - Palpitations [Recovered/Resolved]
  - Anxiety [Recovered/Resolved]
  - Head titubation [Recovered/Resolved]
  - Abdominal discomfort [Recovered/Resolved]

NARRATIVE: CASE EVENT DATE: 20191121
